FAERS Safety Report 8280455 (Version 2)
Quarter: 2012Q4

REPORT INFORMATION
  Report Type: 
  Country: FR (occurrence: FR)
  Receive Date: 20111208
  Receipt Date: 20121218
  Transmission Date: 20130627
  Serious: Yes (Hospitalization)
  Sender: FDA-Public Use
  Company Number: FR-MERCK-1112FRA00019

PATIENT
  Age: 76 Year
  Sex: Female
  Weight: 77.8 kg

DRUGS (4)
  1. JANUMET [Suspect]
     Indication: TYPE 2 DIABETES MELLITUS
     Dosage: 1000mg/50
     Route: 048
     Dates: start: 20110311, end: 20110915
  2. DEPAKOTE [Suspect]
     Indication: BIPOLAR DISORDER
     Dosage: 500 mg, bid
     Route: 048
     Dates: start: 20110311, end: 20110917
  3. TRIATEC (RAMIPRIL) [Concomitant]
     Dosage: 2.5 mg, qd
     Route: 048
  4. METFORMIN HYDROCHLORIDE [Concomitant]
     Dosage: UNK
     Dates: start: 20110915

REACTIONS (2)
  - Thrombocytopenia [Recovering/Resolving]
  - Condition aggravated [Recovering/Resolving]
